APPROVED DRUG PRODUCT: IRBESARTAN
Active Ingredient: IRBESARTAN
Strength: 300MG
Dosage Form/Route: TABLET;ORAL
Application: A077205 | Product #003 | TE Code: AB
Applicant: CHARTWELL MOLECULAR HOLDINGS LLC
Approved: Nov 14, 2012 | RLD: No | RS: No | Type: RX